FAERS Safety Report 7216087-7 (Version None)
Quarter: 2011Q1

REPORT INFORMATION
  Report Type: 
  Country: None (occurrence: None)
  Receive Date: 20110107
  Receipt Date: 20110104
  Transmission Date: 20110831
  Serious: Yes (Death)
  Sender: FDA-Public Use
  Company Number: FR-ASTRAZENECA-2011SE00498

PATIENT
  Age: 30965 Day
  Sex: Female

DRUGS (9)
  1. PRADAXA [Suspect]
     Indication: ARRHYTHMIA
     Route: 048
     Dates: start: 20090101, end: 20101115
  2. DIFFU K [Suspect]
     Route: 048
     Dates: end: 20101115
  3. XANAX [Suspect]
     Route: 048
  4. CORDARONE [Suspect]
     Route: 048
     Dates: end: 20101115
  5. NEXIUM [Suspect]
     Route: 048
  6. TRIATEC [Suspect]
     Route: 048
  7. DEROXAT [Suspect]
     Route: 002
  8. FORLAX [Suspect]
     Route: 048
  9. LEVOTHYROX [Suspect]
     Route: 048

REACTIONS (1)
  - GASTROINTESTINAL HAEMORRHAGE [None]
